FAERS Safety Report 18721906 (Version 2)
Quarter: 2021Q1

REPORT INFORMATION
  Report Type: Spontaneous
  Country: US (occurrence: US)
  Receive Date: 20210111
  Receipt Date: 20210118
  Transmission Date: 20210419
  Serious: No
  Sender: FDA-Public Use
  Company Number: US-ASTRAZENECA-2021A000347

PATIENT
  Sex: Female
  Weight: 66.2 kg

DRUGS (2)
  1. BYDUREON BCISE [Suspect]
     Active Substance: EXENATIDE
     Indication: GLYCOSYLATED HAEMOGLOBIN DECREASED
     Route: 058
     Dates: start: 2019
  2. TRESIBA [Concomitant]
     Active Substance: INSULIN DEGLUDEC
     Indication: DIABETES MELLITUS
     Dosage: 11 DAILY
     Route: 058
     Dates: start: 2017

REACTIONS (4)
  - Injection site extravasation [Unknown]
  - Device mechanical issue [Unknown]
  - Injection site mass [Unknown]
  - Incorrect dose administered by device [Unknown]
